FAERS Safety Report 24754870 (Version 1)
Quarter: 2024Q4

REPORT INFORMATION
  Report Type: Spontaneous
  Country: US (occurrence: US)
  Receive Date: 20241219
  Receipt Date: 20241219
  Transmission Date: 20250114
  Serious: Yes (Other)
  Sender: PFIZER
  Company Number: US-PFIZER INC-PV202400163930

PATIENT
  Age: 40 Year
  Sex: Male

DRUGS (2)
  1. CABERGOLINE [Suspect]
     Active Substance: CABERGOLINE
     Indication: Hyperprolactinaemia
     Dosage: 0.25 MG, 2X/WEEK
  2. CABERGOLINE [Suspect]
     Active Substance: CABERGOLINE
     Dosage: 1 MG THREE TIMES PER WEEK

REACTIONS (1)
  - Psychiatric symptom [Recovering/Resolving]
